FAERS Safety Report 4890744-X (Version None)
Quarter: 2006Q1

REPORT INFORMATION
  Report Type: 
  Country: None (occurrence: None)
  Receive Date: 20060125
  Receipt Date: 20050329
  Transmission Date: 20060701
  Serious: Yes (Other)
  Sender: FDA-Public Use
  Company Number: US-BRISTOL-MYERS SQUIBB COMPANY-12913901

PATIENT
  Sex: Male

DRUGS (5)
  1. STADOL [Suspect]
     Route: 045
     Dates: start: 19940901, end: 19950901
  2. CARISOPRODOL [Concomitant]
  3. LORCET-HD [Concomitant]
  4. VICODIN [Concomitant]
  5. DIAZEPAM [Concomitant]

REACTIONS (1)
  - DEPENDENCE [None]
